FAERS Safety Report 5495027-5 (Version None)
Quarter: 2007Q4

REPORT INFORMATION
  Report Type: 
  Country: None (occurrence: None)
  Receive Date: 20071024
  Receipt Date: 20071010
  Transmission Date: 20080405
  Serious: Yes (Death, Other)
  Sender: FDA-Public Use
  Company Number: CA-SHR-96/00128-CDS

PATIENT
  Age: 18 Year
  Sex: Female
  Weight: 86 kg

DRUGS (2)
  1. BETASERON [Suspect]
     Indication: MULTIPLE SCLEROSIS
     Dosage: 8 MIU
     Route: 058
     Dates: start: 19951220, end: 19960201
  2. MINOCYCLINE HCL [Concomitant]

REACTIONS (7)
  - ACNE [None]
  - BRONCHOPNEUMONIA [None]
  - CARDIAC ARREST [None]
  - DISSEMINATED INTRAVASCULAR COAGULATION [None]
  - FACE OEDEMA [None]
  - MULTIPLE SCLEROSIS [None]
  - RENAL FAILURE ACUTE [None]
